FAERS Safety Report 6670166-1 (Version None)
Quarter: 2010Q2

REPORT INFORMATION
  Report Type: 
  Country: None (occurrence: None)
  Receive Date: 20100405
  Receipt Date: 20100323
  Transmission Date: 20101027
  Serious: Yes (Other)
  Sender: FDA-Public Use
  Company Number: 1000011467

PATIENT
  Sex: Female

DRUGS (1)
  1. MEMANTINE HCL [Suspect]
     Dosage: ORAL
     Route: 048

REACTIONS (1)
  - NO ADVERSE EVENT [None]
